FAERS Safety Report 21376857 (Version 2)
Quarter: 2022Q4

REPORT INFORMATION
  Report Type: Report from Study
  Country: US (occurrence: US)
  Receive Date: 20220926
  Receipt Date: 20221021
  Transmission Date: 20230113
  Serious: Yes (Other)
  Sender: FDA-Public Use
  Company Number: US-HORIZON THERAPEUTICS-HZN-2022-005472

PATIENT

DRUGS (8)
  1. TEPEZZA [Suspect]
     Active Substance: TEPROTUMUMAB-TRBW
     Indication: Endocrine ophthalmopathy
     Dosage: 680 MG, FIRST INFUSION
     Route: 042
     Dates: start: 20220426
  2. TEPEZZA [Suspect]
     Active Substance: TEPROTUMUMAB-TRBW
     Dosage: 1360 MG, SECOND INFUSION
     Route: 042
     Dates: start: 20220517
  3. TEPEZZA [Suspect]
     Active Substance: TEPROTUMUMAB-TRBW
     Dosage: 1360 MG, THIRD INFUSION
     Route: 042
     Dates: start: 20220607
  4. TEPEZZA [Suspect]
     Active Substance: TEPROTUMUMAB-TRBW
     Dosage: 1360 MG, FOURTH INFUSION
     Route: 042
     Dates: start: 20220628
  5. TEPEZZA [Suspect]
     Active Substance: TEPROTUMUMAB-TRBW
     Dosage: 1360 MG, FIFTH INFUSION
     Route: 042
     Dates: start: 20220719
  6. TEPEZZA [Suspect]
     Active Substance: TEPROTUMUMAB-TRBW
     Dosage: 1360 MG, SIXTH INFUSION
     Route: 042
     Dates: start: 20220809
  7. TEPEZZA [Suspect]
     Active Substance: TEPROTUMUMAB-TRBW
     Dosage: 1360 MG, SEVENTH INFUSION
     Route: 042
     Dates: start: 20220830
  8. TEPEZZA [Suspect]
     Active Substance: TEPROTUMUMAB-TRBW
     Dosage: COMPLETED THERAPY (EIGHTH INFUSION)
     Route: 042
     Dates: start: 20220920, end: 20220920

REACTIONS (3)
  - Deafness neurosensory [Unknown]
  - Condition aggravated [Unknown]
  - Ear discomfort [Unknown]

NARRATIVE: CASE EVENT DATE: 20220101
